FAERS Safety Report 18724977 (Version 1)
Quarter: 2021Q1

REPORT INFORMATION
  Report Type: Spontaneous
  Country: NL (occurrence: FR)
  Receive Date: 20210111
  Receipt Date: 20210111
  Transmission Date: 20210419
  Serious: Yes (Life-Threatening, Hospitalization)
  Sender: FDA-Public Use
  Company Number: FR-FRESENIUS KABI-FK202100108

PATIENT
  Age: 76 Year
  Sex: Male
  Weight: 80 kg

DRUGS (14)
  1. SUFENTANIL [Suspect]
     Active Substance: SUFENTANIL
     Indication: SEDATION
     Dosage: UNK
     Route: 041
     Dates: start: 20171110, end: 20171111
  2. METRONIDAZOLE. [Suspect]
     Active Substance: METRONIDAZOLE
     Indication: ANTIBIOTIC PROPHYLAXIS
     Route: 042
     Dates: start: 20171110, end: 20171110
  3. CALCIUM POLYSTYRENE SULFONATE [Concomitant]
     Active Substance: CALCIUM POLYSTYRENE SULFONATE
     Indication: PRODUCT USED FOR UNKNOWN INDICATION
     Dosage: UNK
     Route: 065
  4. CLORAZEPATE DIPOTASSIUM. [Suspect]
     Active Substance: CLORAZEPATE DIPOTASSIUM
     Indication: SEDATION
     Route: 065
     Dates: start: 20171110, end: 20171110
  5. FOLIC ACID. [Concomitant]
     Active Substance: FOLIC ACID
     Indication: PRODUCT USED FOR UNKNOWN INDICATION
     Dosage: UNK
     Route: 065
  6. FLUTICASONE PROPIONATE/SALMETEROL XINAFOATE [Concomitant]
     Active Substance: FLUTICASONE PROPIONATE\SALMETEROL XINAFOATE
     Indication: PRODUCT USED FOR UNKNOWN INDICATION
     Dosage: UNK
     Route: 065
  7. ACETYLSALICYLATE LYSINE [Concomitant]
     Active Substance: ASPIRIN DL-LYSINE
     Indication: PRODUCT USED FOR UNKNOWN INDICATION
     Dosage: UNK
     Route: 065
  8. NEBIVOLOL. [Concomitant]
     Active Substance: NEBIVOLOL
     Indication: PRODUCT USED FOR UNKNOWN INDICATION
     Dosage: UNKNOWN
     Route: 065
  9. PROPOFOL. [Concomitant]
     Active Substance: PROPOFOL
     Indication: PRODUCT USED FOR UNKNOWN INDICATION
     Dosage: UNK
     Route: 065
  10. RAMIPRIL. [Concomitant]
     Active Substance: RAMIPRIL
     Indication: PRODUCT USED FOR UNKNOWN INDICATION
     Dosage: UNK
     Route: 065
  11. LINEZOLID (MANUFACTURER UNKNOWN) [Suspect]
     Active Substance: LINEZOLID
     Indication: ANTIBIOTIC PROPHYLAXIS
     Route: 042
     Dates: start: 20171110, end: 20171110
  12. CEFOTAXIME [Suspect]
     Active Substance: CEFOTAXIME SODIUM
     Indication: ANTIBIOTIC PROPHYLAXIS
     Dosage: 2 G IN TOTAL
     Route: 042
     Dates: start: 20171110, end: 20171111
  13. FEBUXOSTAT. [Concomitant]
     Active Substance: FEBUXOSTAT
     Indication: PRODUCT USED FOR UNKNOWN INDICATION
     Dosage: UNKNOWN
     Route: 065
  14. FUROSEMIDE. [Concomitant]
     Active Substance: FUROSEMIDE
     Indication: PRODUCT USED FOR UNKNOWN INDICATION
     Dosage: UNK
     Route: 065

REACTIONS (1)
  - Anaphylactic shock [Recovered/Resolved]

NARRATIVE: CASE EVENT DATE: 20171110
